FAERS Safety Report 4694211-8 (Version None)
Quarter: 2005Q2

REPORT INFORMATION
  Report Type: 
  Country: None (occurrence: None)
  Receive Date: 20050614
  Receipt Date: 20050303
  Transmission Date: 20051028
  Serious: No
  Sender: FDA-Public Use
  Company Number: USA050392348

PATIENT
  Age: 65 Year
  Sex: Male
  Weight: 82 kg

DRUGS (4)
  1. CIALIS [Suspect]
     Indication: ERECTILE DYSFUNCTION
     Dosage: 10 MG
     Dates: start: 20040101
  2. DEPAKOTE [Concomitant]
  3. WELLBUTRIN [Concomitant]
  4. DIAZEPAM [Concomitant]

REACTIONS (2)
  - FLUSHING [None]
  - THERAPEUTIC RESPONSE DECREASED [None]
